FAERS Safety Report 22214297 (Version 1)
Quarter: 2023Q2

REPORT INFORMATION
  Report Type: Spontaneous
  Country: JP (occurrence: JP)
  Receive Date: 20230414
  Receipt Date: 20230414
  Transmission Date: 20230721
  Serious: Yes (Life-Threatening)
  Sender: FDA-Public Use
  Company Number: JP-BAUSCH-BL-2023-005713

PATIENT
  Age: 52 Year
  Sex: Male

DRUGS (10)
  1. MINOCYCLINE [Suspect]
     Active Substance: MINOCYCLINE HYDROCHLORIDE
     Indication: Bacterial infection
     Dosage: ON DAY 14
     Route: 065
  2. MINOCYCLINE [Suspect]
     Active Substance: MINOCYCLINE HYDROCHLORIDE
     Indication: Haematological infection
  3. MINOCYCLINE [Suspect]
     Active Substance: MINOCYCLINE HYDROCHLORIDE
     Indication: Meningitis
  4. PIPERACILLIN AND TAZOBACTAM [Suspect]
     Active Substance: PIPERACILLIN SODIUM\TAZOBACTAM SODIUM
     Indication: Haematological infection
     Dosage: PIPC 24 G/DAY AND TAZ 2 G/DAY
     Route: 065
  5. PIPERACILLIN AND TAZOBACTAM [Suspect]
     Active Substance: PIPERACILLIN SODIUM\TAZOBACTAM SODIUM
     Indication: Meningitis
  6. CEFOZOPRAN [Concomitant]
     Active Substance: CEFOZOPRAN
     Indication: Bacterial infection
  7. CEFOZOPRAN [Concomitant]
     Active Substance: CEFOZOPRAN
     Indication: Meningitis
  8. CEFMETAZOLE [Concomitant]
     Active Substance: CEFMETAZOLE
     Indication: Bacterial infection
  9. CEFMETAZOLE [Concomitant]
     Active Substance: CEFMETAZOLE
     Indication: Meningitis
  10. CIPROFLOXACIN [Concomitant]
     Active Substance: CIPROFLOXACIN
     Indication: Bacterial infection
     Dosage: ON DAY 14

REACTIONS (1)
  - Therapy non-responder [Unknown]
